FAERS Safety Report 12291727 (Version 1)
Quarter: 2016Q2

REPORT INFORMATION
  Report Type: Report from Study
  Country: US (occurrence: US)
  Receive Date: 20160421
  Receipt Date: 20160421
  Transmission Date: 20160815
  Serious: No
  Sender: FDA-Public Use
  Company Number: US-AMGEN-USASL2016029729

PATIENT
  Age: 55 Year
  Sex: Male

DRUGS (3)
  1. FENOFIBRATE. [Concomitant]
     Active Substance: FENOFIBRATE
  2. REPATHA [Suspect]
     Active Substance: EVOLOCUMAB
     Indication: PRODUCT USED FOR UNKNOWN INDICATION
     Dosage: UNK, UNK
     Route: 065
     Dates: start: 2015
  3. ZETIA [Concomitant]
     Active Substance: EZETIMIBE

REACTIONS (15)
  - Urine abnormality [Unknown]
  - Myalgia [Unknown]
  - Cough [Unknown]
  - Oropharyngeal pain [Unknown]
  - Fatigue [Unknown]
  - Urine odour abnormal [Unknown]
  - Thirst [Unknown]
  - Chest discomfort [Unknown]
  - Vision blurred [Unknown]
  - Night sweats [Unknown]
  - Dry eye [Unknown]
  - Rash pruritic [Unknown]
  - Influenza like illness [Unknown]
  - Stress [Unknown]
  - Anxiety [Unknown]
